FAERS Safety Report 9162503 (Version 1)
Quarter: 2013Q1

REPORT INFORMATION
  Report Type: Spontaneous
  Country: US (occurrence: None)
  Receive Date: 20130222
  Receipt Date: 20130222
  Transmission Date: 20140127
  Serious: Yes (Hospitalization)
  Sender: FDA-Public Use
  Company Number: 2013AP003017

PATIENT
  Age: 9 Month
  Sex: Male

DRUGS (4)
  1. FLECAINIDE ACETATE [Suspect]
     Route: 048
  2. ADENOSINE [Concomitant]
  3. PROPRANOLOL [Concomitant]
  4. FLECAINIDE [Concomitant]

REACTIONS (5)
  - Tachycardia [None]
  - Product compounding quality issue [None]
  - Toxicity to various agents [None]
  - Accidental overdose [None]
  - Drug dispensing error [None]
